FAERS Safety Report 5499493-0 (Version None)
Quarter: 2007Q4

REPORT INFORMATION
  Report Type: 
  Country: None (occurrence: None)
  Receive Date: 20071026
  Receipt Date: 20071019
  Transmission Date: 20080405
  Serious: Yes (Other)
  Sender: FDA-Public Use
  Company Number: US-ASTRAZENECA-2007UW02182

PATIENT
  Sex: Female

DRUGS (3)
  1. SEROQUEL [Suspect]
     Route: 048
     Dates: start: 20000701, end: 20051201
  2. NAVANE [Concomitant]
     Dates: start: 19931101
  3. RISPERDAL [Concomitant]

REACTIONS (13)
  - ABDOMINAL PAIN [None]
  - ARTHRALGIA [None]
  - BACK PAIN [None]
  - CAESAREAN SECTION [None]
  - DIZZINESS [None]
  - NAUSEA [None]
  - PHARYNGOLARYNGEAL PAIN [None]
  - SKIN LACERATION [None]
  - SUBCUTANEOUS ABSCESS [None]
  - TONSILLECTOMY [None]
  - TYPE 2 DIABETES MELLITUS [None]
  - UTERINE HAEMORRHAGE [None]
  - VOMITING [None]
